FAERS Safety Report 15321152 (Version 5)
Quarter: 2019Q4

REPORT INFORMATION
  Report Type: Spontaneous
  Country: US (occurrence: US)
  Receive Date: 20180827
  Receipt Date: 20191106
  Transmission Date: 20200122
  Serious: No
  Sender: FDA-Public Use
  Company Number: US-SA-2018SA236432

PATIENT
  Age: 49 Year
  Sex: Female

DRUGS (3)
  1. VITAMIN D NOS [Concomitant]
     Active Substance: VITAMIN D NOS
     Dosage: 50000 U
  2. DUPIXENT [Suspect]
     Active Substance: DUPILUMAB
     Dosage: 300 MG, QOW
  3. DUPIXENT [Suspect]
     Active Substance: DUPILUMAB
     Indication: DERMATITIS ATOPIC
     Dosage: 300 MG, QOW
     Route: 058
     Dates: start: 20180605

REACTIONS (14)
  - Eczema [Unknown]
  - Dermatitis atopic [Not Recovered/Not Resolved]
  - Temperature intolerance [Not Recovered/Not Resolved]
  - Influenza like illness [Not Recovered/Not Resolved]
  - Blood cholesterol increased [Unknown]
  - Vitamin D decreased [Unknown]
  - Gait disturbance [Unknown]
  - Paraesthesia [Unknown]
  - Blood creatinine abnormal [Unknown]
  - Arthralgia [Unknown]
  - Vascular injury [Unknown]
  - Fatigue [Not Recovered/Not Resolved]
  - Blood glucose abnormal [Unknown]
  - Insomnia [Unknown]

NARRATIVE: CASE EVENT DATE: 2018
